FAERS Safety Report 7477220-5 (Version None)
Quarter: 2011Q2

REPORT INFORMATION
  Report Type: 
  Country: None (occurrence: None)
  Receive Date: 20110513
  Receipt Date: 20110502
  Transmission Date: 20111010
  Serious: Yes (Hospitalization)
  Sender: FDA-Public Use
  Company Number: FR-UCBSA-032097

PATIENT
  Sex: Male

DRUGS (11)
  1. KEPPRA [Suspect]
     Dosage: DOSE DECREASED
     Route: 048
     Dates: start: 20110228, end: 20110303
  2. POTASSIUM CHLORIDE [Concomitant]
  3. MEDROL [Suspect]
     Route: 048
     Dates: start: 20101001
  4. ATACAND [Suspect]
     Route: 048
  5. NEXIUM [Suspect]
     Route: 048
     Dates: start: 20101001, end: 20110223
  6. ATENOLOL [Suspect]
     Route: 048
  7. KEPPRA [Suspect]
     Indication: CONVULSION
     Route: 048
     Dates: start: 20101001, end: 20110227
  8. TEMODAL [Suspect]
     Indication: GLIOBLASTOMA
     Route: 048
     Dates: start: 20110101, end: 20110223
  9. FUROSEMIDE [Suspect]
     Route: 048
     Dates: start: 20110211, end: 20110224
  10. DOMPERIDONE [Suspect]
     Route: 048
     Dates: start: 20110201, end: 20110224
  11. IMOVANE [Suspect]
     Route: 048
     Dates: end: 20110223

REACTIONS (7)
  - HYPERBILIRUBINAEMIA [None]
  - HEPATIC ENZYME INCREASED [None]
  - DECREASED APPETITE [None]
  - JAUNDICE [None]
  - DEHYDRATION [None]
  - CHOLESTASIS [None]
  - RENAL IMPAIRMENT [None]
